FAERS Safety Report 7224700-3 (Version None)
Quarter: 2011Q1

REPORT INFORMATION
  Report Type: 
  Country: None (occurrence: None)
  Receive Date: 20110104
  Receipt Date: 20101221
  Transmission Date: 20110831
  Serious: Yes (Hospitalization)
  Sender: FDA-Public Use
  Company Number: 1000017706

PATIENT
  Sex: Male

DRUGS (7)
  1. LEVETIRACETAM (LEVETIRACETAM) (TABLETS) (LEVETIRACETAM) [Concomitant]
  2. OLANZAPINE (OLANZAPINE) (OLANZAPINE) [Concomitant]
  3. DIAZEPAM [Concomitant]
  4. ESCITALOPRAM [Suspect]
     Indication: ANXIETY
     Dosage: 40 MG (20 MG, 2 IN 1 D, ORAL
     Route: 048
  5. FLUANXOL DEPOT INJECTION (FLUPENTIXOL) (INJECTION) [Suspect]
     Indication: SCHIZOPHRENIA
     Dosage: 40 MG, 1 IN 4 D, INTRAMUSCULAR, 80 MG, INTRAMUSCULAR
     Route: 030
     Dates: start: 20100801
  6. ATORVASTATIN (ATORVASTATIN) (ATORVASTATIN) [Concomitant]
  7. METFORMIN HCL [Concomitant]

REACTIONS (18)
  - INTENTIONAL SELF-INJURY [None]
  - PSYCHOTIC DISORDER [None]
  - CORNEAL REFLEX DECREASED [None]
  - TOXICITY TO VARIOUS AGENTS [None]
  - DRUG INEFFECTIVE [None]
  - MUSCLE RIGIDITY [None]
  - EPISTAXIS [None]
  - HEAD INJURY [None]
  - EPILEPSY [None]
  - BODY TEMPERATURE FLUCTUATION [None]
  - OVERDOSE [None]
  - AGGRESSION [None]
  - DRUG INTERACTION [None]
  - LOSS OF CONSCIOUSNESS [None]
  - DRUG ABUSE [None]
  - GENERAL PHYSICAL HEALTH DETERIORATION [None]
  - TREMOR [None]
  - PARKINSONISM [None]
